FAERS Safety Report 9514748 (Version 1)
Quarter: 2013Q3

REPORT INFORMATION
  Report Type: Spontaneous
  Country: DK (occurrence: DK)
  Receive Date: 20130911
  Receipt Date: 20130911
  Transmission Date: 20140515
  Serious: Yes (Hospitalization)
  Sender: FDA-Public Use
  Company Number: DK-ASTRAZENECA-2013SE67150

PATIENT
  Age: 73 Year
  Sex: Female

DRUGS (7)
  1. BRILIQUE [Suspect]
     Indication: ANTICOAGULANT THERAPY
     Route: 048
     Dates: start: 20130304, end: 20130821
  2. MAGNYL ^DAK^ [Concomitant]
     Indication: ANTICOAGULANT THERAPY
  3. ZARATOR [Concomitant]
     Indication: HYPERCHOLESTEROLAEMIA
  4. ENACODAN [Concomitant]
     Indication: HYPERTENSION
  5. GLYCERYLNITRAT [Concomitant]
     Indication: ANGINA PECTORIS
  6. METOPROLOLSUCCINAT ^ACTAVIS^ [Concomitant]
     Indication: THROMBOSIS PROPHYLAXIS
  7. PANTOPRAZOL ^ACTAVIS^ [Concomitant]
     Indication: GASTROOESOPHAGEAL REFLUX DISEASE

REACTIONS (1)
  - Anaemia [Not Recovered/Not Resolved]
